FAERS Safety Report 25878426 (Version 2)
Quarter: 2025Q4

REPORT INFORMATION
  Report Type: Report from Study
  Country: CA (occurrence: CA)
  Receive Date: 20251003
  Receipt Date: 20251112
  Transmission Date: 20260118
  Serious: No
  Sender: ASTELLAS
  Company Number: CA-ASTELLAS-2025-AER-052852

PATIENT
  Age: 57 Year
  Sex: Female

DRUGS (30)
  1. VEOZAH [Suspect]
     Active Substance: FEZOLINETANT
     Indication: Menopausal symptoms
     Route: 048
     Dates: start: 20250508, end: 20250707
  2. Apo Indapamide [Concomitant]
     Indication: Product used for unknown indication
     Dosage: TAKE 1 TABLET DAILY WITH LUNCH - REGULARLY (PRESSURE)
     Route: 065
  3. RIVA RIVAROXABAN [Concomitant]
     Indication: Anticoagulant therapy
     Dosage: TAKE 1 TABLET ONCE DAILY FOR 14 DAYS?**START POST-SCLEROTHERAPY ON THE SAME DAY * (ANTICOAGULANT)
     Route: 065
  4. JAMP CALCIUM [Concomitant]
     Indication: Product used for unknown indication
     Dosage: TAKE 1 TABLET ONCE DAILY WITH FOOD REGULARLY
     Route: 065
  5. CHOLECALCIFEROL [Concomitant]
     Active Substance: CHOLECALCIFEROL
     Indication: Product used for unknown indication
     Dosage: TAKE 1 TABLET IN THE MORNING ONCE A WEEK ALWAYS ON THE SAME DAY EVERY WEEK (VITAMIN D)
     Route: 065
  6. AG PERINDOPRIL [Concomitant]
     Indication: Product used for unknown indication
     Dosage: TAKE 2 TABLETS ONCE DAILY IN THE MORNING AT BREAKFAST
     Route: 065
  7. Bio letrozole [Concomitant]
     Indication: Product used for unknown indication
     Dosage: TAKE 1 TABLET ONCE A DAY ^- ALWAYS AT THE SAME TIME ^- REGULARLY
     Route: 065
  8. RIFAXIMIN [Concomitant]
     Active Substance: RIFAXIMIN
     Indication: Product used for unknown indication
     Dosage: TAKE 1 TABLET 3 TIMES A DAY FOR 14 DAYS
     Route: 065
  9. RIFAXIMIN [Concomitant]
     Active Substance: RIFAXIMIN
     Dosage: TAKE 1 TABLET 3 TIMES PER DAY EVERY 8 HOURS FOR 14 DAYS (SCI-ANTIBACTERIAL)
     Route: 065
  10. ACYCLOVIR [Concomitant]
     Active Substance: ACYCLOVIR
     Indication: Product used for unknown indication
     Dosage: APPLY 5 TIMES A DAY TO LESIONS IF NEEDED
     Route: 061
  11. DICLOFENAC DIETHYLAMINE [Concomitant]
     Active Substance: DICLOFENAC DIETHYLAMINE
     Indication: Pain
     Dosage: APPLY TOPICALLY 2 TIMES A DAY - IF NEEDED TO PAINFUL AREAS ON LEGS FOR 1-2 WEEKS (PAIN)
     Route: 061
  12. ARAZLO [Concomitant]
     Active Substance: TAZAROTENE
     Indication: Product used for unknown indication
     Dosage: LOCAL APPLICATION IN A THIN LAYER ONCE DAILY AT BEDTIME TO AFFECTED FACIAL AREAS
     Route: 065
  13. NORITATE [Concomitant]
     Active Substance: METRONIDAZOLE
     Indication: Product used for unknown indication
     Dosage: IN LOCAL APPLICATION TO AFFECTED AREAS OF THE FACE ONCE DAILY AT BEDTIME (ROSACEA)
     Route: 061
  14. AMLODIPINE BESYLATE [Concomitant]
     Active Substance: AMLODIPINE BESYLATE
     Indication: Product used for unknown indication
     Dosage: TAKE 1 TABLET DAILY WITH LUNCH - FOR 1 WEEK THEN GO TO STEP 2 STEP 1/2
     Route: 065
  15. AZITHROMYCIN [Concomitant]
     Active Substance: AZITHROMYCIN
     Indication: Infection
     Dosage: 2 TABLETS IMMEDIATELY THEN 1 TABLET ONCE DAILY FOR 4 DAYS (INFECTION)
     Route: 065
  16. Ulone [Concomitant]
     Indication: Product used for unknown indication
     Dosage: 25 MG/5 ML?TAKE 5 ML - 3 TIMES A DAY EVERY 8 HOURS IF NEEDED
     Route: 065
  17. SYMBICORT [Concomitant]
     Active Substance: BUDESONIDE\FORMOTEROL FUMARATE DIHYDRATE
     Indication: Product used for unknown indication
     Dosage: TAKE 2 INHALATIONS 3 TIMES PER DAY FOR 7 DAYS THEN 2 TIMES PER DAY FOR 7 DAYS.
     Route: 055
  18. MOMETASONE [Concomitant]
     Active Substance: MOMETASONE
     Indication: Product used for unknown indication
     Dosage: PERFORM 2 VAPORIZATIONS IN EACH NOSTRIL ONCE DAILY FOR 30 DAYS
     Route: 045
  19. CODEINE [Concomitant]
     Active Substance: CODEINE
     Indication: Cough
     Dosage: 25MG/5 ML?TAKE 5 ML ONCE DAILY AT BEDTIME?IF NEEDED *COUGH*
     Route: 065
  20. FLUTICASONE FUROATE [Concomitant]
     Active Substance: FLUTICASONE FUROATE
     Indication: Hypersensitivity
     Dosage: DO 2 VAPORIZATIONS IN EACH NOSTRIL ONCE DAILY (ALLERGIES/NASAL CONGESTION)
     Route: 045
  21. FLUTICASONE FUROATE [Concomitant]
     Active Substance: FLUTICASONE FUROATE
     Indication: Nasal congestion
  22. PINAVERIUM BROMIDE [Concomitant]
     Active Substance: PINAVERIUM BROMIDE
     Indication: Product used for unknown indication
     Dosage: TAKE 1 TABLET 3 TIMES A DAY WITH MEALS IF NEEDED
     Route: 065
  23. HYDROMORPHONE HYDROCHLORIDE [Concomitant]
     Active Substance: HYDROMORPHONE HYDROCHLORIDE
     Indication: Pain
     Dosage: TAKE ? TO 1 TABLET EVERY 4 HOURS - AS NEEDED (PAIN)
     Route: 065
  24. CELECOXIB [Concomitant]
     Active Substance: CELECOXIB
     Indication: Product used for unknown indication
     Dosage: TAKE 1 CAPSULE TWICE A DAY MORNING AND EVENING FOR 5 DAYS THEN IF NEEDED
     Route: 065
  25. Emolax [Concomitant]
     Indication: Constipation
     Dosage: TAKE 17 GRAMS DISSOLVED IN A GLASS OF WATER ONCE A DAY IF NEEDED (SPACE 2 HOURS APART FROM OTHER MED
     Route: 065
  26. FUCIDIN [Concomitant]
     Active Substance: FUSIDATE SODIUM
     Indication: Antibiotic therapy
     Dosage: LOCAL APPLICATION TO THE CHEST WOUND TWICE DAILY MORNING AND EVENING FOR 7 DAYS?**ANTIBIOTIC**
     Route: 061
  27. TRAZODONE HYDROCHLORIDE [Concomitant]
     Active Substance: TRAZODONE HYDROCHLORIDE
     Indication: Insomnia
     Dosage: TAKE 1 TABLET ONCE DAILY AT BEDTIME AS NEEDED (INSOMNIA)
     Route: 065
  28. Riva Citalopram [Concomitant]
     Indication: Product used for unknown indication
     Dosage: TAKE 1 TABLET ONCE DAILY IN THE MORNING WITH BREAKFAST REGULARLY FOR 14 DAYS THEN PHARMACIST FOLLOW-
     Route: 065
  29. ACETAMINOPHEN [Concomitant]
     Active Substance: ACETAMINOPHEN
     Indication: Pain
     Dosage: CAPLET?TAKE 2 TABLETS EVERY 6 HOURS - AS NEEDED (PAIN - FEVER)
     Route: 065
  30. ACETAMINOPHEN [Concomitant]
     Active Substance: ACETAMINOPHEN
     Indication: Pyrexia

REACTIONS (2)
  - Alanine aminotransferase increased [Not Recovered/Not Resolved]
  - Gamma-glutamyltransferase increased [Not Recovered/Not Resolved]

NARRATIVE: CASE EVENT DATE: 20250604
